FAERS Safety Report 18414555 (Version 1)
Quarter: 2020Q4

REPORT INFORMATION
  Report Type: Spontaneous
  Country: US (occurrence: US)
  Receive Date: 20201022
  Receipt Date: 20201022
  Transmission Date: 20210114
  Serious: Yes (Other)
  Sender: FDA-Public Use
  Company Number: US-PFIZER INC-2020359483

PATIENT
  Age: 48 Year
  Sex: Female
  Weight: 90.72 kg

DRUGS (4)
  1. DILANTIN-125 [Suspect]
     Active Substance: PHENYTOIN
     Dosage: UNK(43ML)
  2. DILANTIN-125 [Suspect]
     Active Substance: PHENYTOIN
     Indication: GENERALISED TONIC-CLONIC SEIZURE
     Dosage: 21 ML, 1X/DAY( EVERY NIGHT AT BEDTIME)
     Route: 048
  3. DILANTIN-125 [Suspect]
     Active Substance: PHENYTOIN
     Dosage: UNK(21-22ML)
  4. DILANTIN-125 [Suspect]
     Active Substance: PHENYTOIN
     Dosage: 22 ML, 1X/DAY (ONCE AT NIGHT TIME)

REACTIONS (3)
  - Drug dependence [Unknown]
  - Prescribed overdose [Unknown]
  - Seizure [Recovered/Resolved]

NARRATIVE: CASE EVENT DATE: 2017
